FAERS Safety Report 7473104-7 (Version None)
Quarter: 2011Q2

REPORT INFORMATION
  Report Type: 
  Country: None (occurrence: None)
  Receive Date: 20110503
  Receipt Date: 20110420
  Transmission Date: 20111010
  Serious: Yes (Hospitalization, Other)
  Sender: FDA-Public Use
  Company Number: 2009AC000214

PATIENT
  Age: 64 Year
  Sex: Male

DRUGS (40)
  1. LESCOL [Concomitant]
  2. METFORMIN HCL [Concomitant]
  3. FERROUR SULFATE [Concomitant]
  4. LOVASTATIN [Concomitant]
  5. HYDRALAZINE HCL [Concomitant]
  6. WARFARIN SODIUM [Concomitant]
  7. NOVOLIN 70/30 [Concomitant]
  8. LIPITOR [Concomitant]
  9. DIGOXIN [Suspect]
     Indication: CARDIAC FAILURE CONGESTIVE
     Dosage: 0L250 MG, QD, PO
     Route: 048
     Dates: start: 20041201
  10. LASIX [Concomitant]
  11. AMLODIPINE [Concomitant]
  12. ISOSORBIDE MONINITRATE [Concomitant]
  13. PRAVASTATIN [Concomitant]
  14. LOTREL [Concomitant]
  15. POTASSIUM [Concomitant]
  16. INSULIN [Concomitant]
  17. TRICOR [Concomitant]
  18. GLARGINE [Concomitant]
  19. ZOCOR [Concomitant]
  20. OMEPRAZOLE [Concomitant]
  21. NORVASC [Concomitant]
  22. INSULIN [Concomitant]
  23. DIURETICS [Concomitant]
  24. GLIPIZIDE [Concomitant]
  25. LESCOL [Concomitant]
  26. WARFARIN SODIUM [Concomitant]
  27. METOPROLOL TARTRATE [Concomitant]
  28. TOPROL-XL [Concomitant]
  29. FUROSEMIDE [Concomitant]
  30. AUGMENTIN [Concomitant]
  31. DIGOXIN [Suspect]
     Indication: PRODUCT USED FOR UNKNOWN INDICATION
     Dosage: 0.25 MG. QD, PO
     Route: 048
     Dates: end: 20080808
  32. TOPROL-XL [Concomitant]
  33. HYDRALAZINE HCL [Concomitant]
  34. IMDUR [Concomitant]
  35. NOVOLOG [Concomitant]
  36. METFORMIN HCL [Concomitant]
  37. FENOFIBRATE [Concomitant]
  38. RENAGEL [Concomitant]
  39. NORVASC [Concomitant]
  40. LANTUS [Concomitant]

REACTIONS (55)
  - UNEVALUABLE EVENT [None]
  - CARDIOACTIVE DRUG LEVEL INCREASED [None]
  - ANAEMIA [None]
  - GANGRENE [None]
  - AORTIC VALVE INCOMPETENCE [None]
  - HYPERKALAEMIA [None]
  - AORTIC CALCIFICATION [None]
  - PAIN [None]
  - ANHEDONIA [None]
  - MENTAL STATUS CHANGES [None]
  - CONFUSIONAL STATE [None]
  - SEPSIS [None]
  - DYSPHAGIA [None]
  - WEIGHT DECREASED [None]
  - ELECTROCARDIOGRAM ST-T CHANGE [None]
  - LEFT VENTRICULAR DYSFUNCTION [None]
  - ECONOMIC PROBLEM [None]
  - RETINAL DETACHMENT [None]
  - CARDIAC FAILURE CONGESTIVE [None]
  - DILATATION VENTRICULAR [None]
  - TRICUSPID VALVE INCOMPETENCE [None]
  - ENDOCARDITIS [None]
  - OESOPHAGEAL MASS [None]
  - ANGINA PECTORIS [None]
  - PLEURAL EFFUSION [None]
  - ACUTE PRERENAL FAILURE [None]
  - HYPERHIDROSIS [None]
  - ATRIOVENTRICULAR BLOCK FIRST DEGREE [None]
  - VENTRICULAR TACHYCARDIA [None]
  - MULTIPLE INJURIES [None]
  - CATARACT [None]
  - FALL [None]
  - INTERNATIONAL NORMALISED RATIO INCREASED [None]
  - PERIPHERAL VASCULAR DISORDER [None]
  - FATIGUE [None]
  - HYPOTENSION [None]
  - PULMONARY HYPERTENSION [None]
  - URINARY INCONTINENCE [None]
  - HYPOGLYCAEMIA [None]
  - DYSPNOEA EXERTIONAL [None]
  - ANXIETY [None]
  - RENAL FAILURE CHRONIC [None]
  - TOXICITY TO VARIOUS AGENTS [None]
  - PNEUMONIA [None]
  - DIABETES MELLITUS [None]
  - ARTHRALGIA [None]
  - DECREASED APPETITE [None]
  - SUPRAVENTRICULAR EXTRASYSTOLES [None]
  - DIABETIC NEPHROPATHY [None]
  - HAEMODIALYSIS [None]
  - DIABETIC RETINOPATHY [None]
  - SUBRETINAL FIBROSIS [None]
  - DIARRHOEA [None]
  - HYPERTENSION [None]
  - INTRACARDIAC THROMBUS [None]
